FAERS Safety Report 14391032 (Version 2)
Quarter: 2018Q1

REPORT INFORMATION
  Report Type: Spontaneous
  Country: US (occurrence: US)
  Receive Date: 20180116
  Receipt Date: 20180119
  Transmission Date: 20180509
  Serious: No
  Sender: FDA-Public Use
  Company Number: US-PFIZER INC-2017471643

PATIENT
  Age: 60 Year
  Sex: Male
  Weight: 99.79 kg

DRUGS (21)
  1. DURAGESIC [Concomitant]
     Active Substance: FENTANYL
     Dosage: UNK (12 MCG/HR)
  2. TOPROL XL [Concomitant]
     Active Substance: METOPROLOL SUCCINATE
     Dosage: 50 MG, DAILY
     Route: 048
  3. PROTONIX [Concomitant]
     Active Substance: PANTOPRAZOLE SODIUM
     Dosage: 40 MG, DAILY
     Route: 048
  4. K-DUR [Concomitant]
     Active Substance: POTASSIUM CHLORIDE
     Dosage: 10 MEQ, 2X/DAY
     Route: 048
  5. ZOCOR [Concomitant]
     Active Substance: SIMVASTATIN
     Dosage: 40 MG, 1X/DAY (TAKE 40 MG BY MOUTH EVERY BEDTIME)
     Route: 048
  6. ZANAFLEX [Concomitant]
     Active Substance: TIZANIDINE HYDROCHLORIDE
     Dosage: 2 MG, DAILY
     Route: 048
  7. SUTENT [Suspect]
     Active Substance: SUNITINIB MALATE
     Indication: RENAL CANCER STAGE IV
     Dosage: 50 MG, CYCLIC (TAKE BY MOUTH DAILY X 4 WEEKS OF 6 WEEK CYCLE.)
     Route: 048
     Dates: start: 201710, end: 20180104
  8. VICTOZA [Concomitant]
     Active Substance: LIRAGLUTIDE
     Dosage: 1.8 MG, DAILY (0.6 MG/0.1 ML (18 MG/3 ML) INJ)
     Route: 058
  9. PRECOSE [Concomitant]
     Active Substance: ACARBOSE
     Dosage: 100 MG, 3X/DAY(TAKE 1 TAB BY MOUTH 3 TIMES A DAY WITH MEALS)
     Route: 048
  10. APRESOLINE HYDROCHLORIDE [Concomitant]
     Active Substance: HYDRALAZINE HYDROCHLORIDE
     Indication: PERITONITIS BACTERIAL
     Dosage: 50 MG, AS NEEDED(4 TIMES A DAY AS NEEDED)
     Route: 048
  11. ATIVAN [Concomitant]
     Active Substance: LORAZEPAM
     Dosage: 0.5 MG, 3X/DAY
     Route: 048
  12. ZOFRAN [Concomitant]
     Active Substance: ONDANSETRON HYDROCHLORIDE
     Indication: NAUSEA
     Dosage: 4 MG, AS NEEDED (TAKE 1 TAB BY MOUTH EVERY 8 HOURS AS NEEDED)
     Route: 048
  13. ROXICODONE [Concomitant]
     Active Substance: OXYCODONE HYDROCHLORIDE
     Dosage: 180 MG, DAILY (TAKE BY MOUTH 6 TIMES A DAY)
     Route: 048
  14. DURAGESIC [Concomitant]
     Active Substance: FENTANYL
     Dosage: UNK (50 MCG/HR PATCH)
  15. PRINIVIL [Concomitant]
     Active Substance: LISINOPRIL
     Dosage: 40 MG, 1X/DAY (TAKE 40 MG BY MOUTH EVERY BEDTIME)
     Route: 048
  16. SUTENT [Suspect]
     Active Substance: SUNITINIB MALATE
     Dosage: UNK, 1X/DAY
     Route: 048
  17. CALCIUM ALGINATE [Concomitant]
     Active Substance: CALCIUM ALGINATE
     Dosage: UNK UNK, ALTERNATE DAY(2 X 2^ BNDG)(1 PATCH BY TOPICAL ROUTE AS DIRECTED CHANGE PATCH )
     Route: 061
  18. CELEXA [Concomitant]
     Active Substance: CITALOPRAM HYDROBROMIDE
     Dosage: 40 MG, 1X/DAY(TAKE 40 MG BY MOUTH EVERY MORNING)
     Route: 048
  19. COLACE [Concomitant]
     Active Substance: DOCUSATE SODIUM
     Indication: RENAL CANCER STAGE IV
     Dosage: 100 MG, DAILY
     Route: 048
  20. ZESTRIL [Concomitant]
     Active Substance: LISINOPRIL
     Dosage: 40 MG, 1X/DAY(TAKE 40 MG BY MOUTH EVERY BEDTIME)
     Route: 048
  21. MEDIHONEY [Concomitant]
     Active Substance: HONEY
     Dosage: UNK (1 PATCH BY TOPICAL ROUTE AS DIRECTED CHANGE PATCH EVERY OTHER DAY)
     Route: 061

REACTIONS (1)
  - Neoplasm progression [Not Recovered/Not Resolved]

NARRATIVE: CASE EVENT DATE: 20180104
